FAERS Safety Report 17405331 (Version 1)
Quarter: 2020Q1

REPORT INFORMATION
  Report Type: Spontaneous
  Country: ES (occurrence: ES)
  Receive Date: 20200212
  Receipt Date: 20200212
  Transmission Date: 20200409
  Serious: Yes (Other)
  Sender: FDA-Public Use
  Company Number: ES-TEVA-2020-ES-1184411

PATIENT
  Age: 67 Year
  Sex: Male

DRUGS (1)
  1. ATORVASTATINA 40 MG 28 COMPRIMIDOS [Suspect]
     Active Substance: ATORVASTATIN
     Indication: CEREBROVASCULAR DISORDER
     Dosage: 40MG
     Route: 048
     Dates: start: 20191114, end: 20200120

REACTIONS (2)
  - Disorientation [Recovered/Resolved]
  - Confusional state [Recovered/Resolved]

NARRATIVE: CASE EVENT DATE: 20191114
